FAERS Safety Report 14860998 (Version 1)
Quarter: 2018Q2

REPORT INFORMATION
  Report Type: Spontaneous
  Country: FR (occurrence: FR)
  Receive Date: 20180508
  Receipt Date: 20180508
  Transmission Date: 20180711
  Serious: Yes (Other)
  Sender: FDA-Public Use
  Company Number: FR-AVADEL LEGACY PHARMACEUTICALS, LLC-2018AVA00042

PATIENT
  Age: 78 Year
  Sex: Male

DRUGS (5)
  1. CISATRACURIUM. [Concomitant]
     Active Substance: CISATRACURIUM
     Route: 065
  2. SUFENTANYL [Concomitant]
     Active Substance: SUFENTANIL
     Route: 065
  3. AMOXICILLIN/CLAVULANIC ACID [Concomitant]
     Active Substance: AMOXICILLIN\CLAVULANIC ACID
     Route: 065
  4. EPHEDRINE SULFATE. [Suspect]
     Active Substance: EPHEDRINE SULFATE
     Route: 042
  5. FENTANYL. [Concomitant]
     Active Substance: FENTANYL
     Route: 065

REACTIONS (1)
  - Dermatitis exfoliative generalised [Recovered/Resolved]
